FAERS Safety Report 9984592 (Version 2)
Quarter: 2014Q1

REPORT INFORMATION
  Report Type: Spontaneous
  Country: GB (occurrence: GB)
  Receive Date: 20140307
  Receipt Date: 20140327
  Transmission Date: 20141002
  Serious: Yes (Other)
  Sender: FDA-Public Use
  Company Number: GB-ACTAVIS-2014-03733

PATIENT
  Age: 64 Year
  Sex: Female

DRUGS (1)
  1. CLOPIDOGREL (UNKNOWN) [Suspect]
     Indication: TRANSIENT ISCHAEMIC ATTACK
     Dosage: 75 MG, UNKNOWN
     Route: 065
     Dates: start: 201309

REACTIONS (2)
  - Transient ischaemic attack [Recovered/Resolved]
  - Product substitution issue [Unknown]
